FAERS Safety Report 4708843-1 (Version None)
Quarter: 2005Q3

REPORT INFORMATION
  Report Type: 
  Country: None (occurrence: None)
  Receive Date: 20050705
  Receipt Date: 20050629
  Transmission Date: 20060218
  Serious: Yes (Other)
  Sender: FDA-Public Use
  Company Number: 2005-06-2098

PATIENT
  Age: 45 Year
  Sex: Male

DRUGS (1)
  1. CLARINEX [Suspect]
     Indication: RHINITIS
     Dosage: 5 MG QD ORAL
     Route: 048
     Dates: start: 20050618, end: 20050618

REACTIONS (2)
  - DYSPNOEA [None]
  - LARYNGEAL OEDEMA [None]
